FAERS Safety Report 8165693-4 (Version None)
Quarter: 2012Q1

REPORT INFORMATION
  Report Type: 
  Country: None (occurrence: None)
  Receive Date: 20120227
  Receipt Date: 20120223
  Transmission Date: 20120608
  Serious: Yes (Death)
  Sender: FDA-Public Use
  Company Number: US-BAYER-2011-035605

PATIENT
  Age: 46 Year
  Sex: Female

DRUGS (5)
  1. YAZ [Suspect]
  2. CEPHALEXIN [Concomitant]
     Dosage: 500 MG, UNK
     Route: 048
  3. YAZ [Suspect]
     Indication: PREMENSTRUAL SYNDROME
     Dosage: UNK
     Dates: start: 20071001, end: 20090401
  4. FLUTICASONE PROPIONATE [Concomitant]
     Dosage: 50 UNK, UNK
  5. CIPROFLOXACIN [Concomitant]
     Dosage: 500 MG, UNK
     Route: 048
     Dates: start: 20090303

REACTIONS (1)
  - PULMONARY EMBOLISM [None]
